FAERS Safety Report 9041810 (Version 1)
Quarter: 2013Q1

REPORT INFORMATION
  Report Type: Spontaneous
  Country: US (occurrence: US)
  Receive Date: 20130129
  Receipt Date: 20130129
  Transmission Date: 20140127
  Serious: No
  Sender: FDA-Public Use
  Company Number: US-ABBOTT-12P-163-0902451-00

PATIENT
  Age: 51 Year
  Sex: Female

DRUGS (4)
  1. HUMIRA 40 MG/ 0.8 ML PRE-FILLED SYRINGE [Suspect]
     Indication: PSORIASIS
     Dates: start: 20120103
  2. FISH OIL [Concomitant]
     Indication: SUPPLEMENTATION THERAPY
  3. ASPIRIN [Concomitant]
     Indication: ILL-DEFINED DISORDER
  4. MULTIVITAMIN [Concomitant]
     Indication: VITAMIN SUPPLEMENTATION

REACTIONS (2)
  - Eye swelling [Not Recovered/Not Resolved]
  - Pharyngeal disorder [Not Recovered/Not Resolved]
